FAERS Safety Report 26041285 (Version 1)
Quarter: 2025Q4

REPORT INFORMATION
  Report Type: Spontaneous
  Country: VE (occurrence: VE)
  Receive Date: 20251113
  Receipt Date: 20251113
  Transmission Date: 20260117
  Serious: Yes (Other)
  Sender: PFIZER
  Company Number: VE-PFIZER INC-PV202200133919

PATIENT
  Age: 50 Year
  Sex: Male

DRUGS (1)
  1. BOSULIF [Suspect]
     Active Substance: BOSUTINIB MONOHYDRATE
     Indication: Chronic myeloid leukaemia
     Dosage: 500 MG

REACTIONS (11)
  - Pneumonia [Unknown]
  - Colitis [Unknown]
  - Pyrexia [Unknown]
  - Musculoskeletal chest pain [Unknown]
  - Paraesthesia [Unknown]
  - Ocular discomfort [Unknown]
  - Ocular hyperaemia [Unknown]
  - Food poisoning [Unknown]
  - Rash [Unknown]
  - Neuritis [Unknown]
  - Gait disturbance [Unknown]

NARRATIVE: CASE EVENT DATE: 20221224
